FAERS Safety Report 6582397-X (Version None)
Quarter: 2010Q1

REPORT INFORMATION
  Report Type: 
  Country: None (occurrence: None)
  Receive Date: 20100216
  Receipt Date: 20100205
  Transmission Date: 20100710
  Serious: Yes (Other)
  Sender: FDA-Public Use
  Company Number: CA-JNJFOC-20100204371

PATIENT
  Sex: Female
  Weight: 32.5 kg

DRUGS (4)
  1. REMICADE [Suspect]
     Indication: CROHN'S DISEASE
     Dosage: 200 MG EVERY 6-8 WEEKS;
     Route: 042
  2. REMICADE [Suspect]
     Dosage: DOSE #7; INFUSION RATE 40ML/HR
     Route: 042
  3. BENADRYL [Concomitant]
     Indication: PREMEDICATION
     Route: 042
  4. SOLU-CORTEF [Concomitant]
     Indication: PREMEDICATION

REACTIONS (7)
  - AGGRESSION [None]
  - COUGH [None]
  - ERYTHEMA [None]
  - IMPATIENCE [None]
  - INFUSION RELATED REACTION [None]
  - THROAT IRRITATION [None]
  - THROAT TIGHTNESS [None]
